FAERS Safety Report 8018289-9 (Version None)
Quarter: 2012Q1

REPORT INFORMATION
  Report Type: 
  Country: None (occurrence: None)
  Receive Date: 20120103
  Receipt Date: 20111223
  Transmission Date: 20120608
  Serious: Yes (Hospitalization)
  Sender: FDA-Public Use
  Company Number: US-BAYER-2011-064131

PATIENT
  Age: 42 Year
  Sex: Female

DRUGS (6)
  1. YAZ [Suspect]
  2. OMEPRAZOLE [Concomitant]
     Indication: GASTROOESOPHAGEAL REFLUX DISEASE
     Dosage: 20 MG, DAILY
     Route: 048
  3. YAZ [Suspect]
     Indication: PREMENSTRUAL SYNDROME
     Dosage: UNK
     Route: 048
     Dates: start: 20070101, end: 20100101
  4. NAPROSYN [Concomitant]
     Indication: BACK PAIN
  5. PERCOCET [Concomitant]
  6. LEVAQUIN [Concomitant]
     Dosage: UNK

REACTIONS (3)
  - CHOLECYSTITIS ACUTE [None]
  - PAIN [None]
  - GALLBLADDER NON-FUNCTIONING [None]
